FAERS Safety Report 10314457 (Version 1)
Quarter: 2014Q3

REPORT INFORMATION
  Report Type: Spontaneous
  Country: IR (occurrence: IR)
  Receive Date: 20140718
  Receipt Date: 20140718
  Transmission Date: 20150326
  Serious: Yes (Other)
  Sender: FDA-Public Use
  Company Number: IR-ABBVIE-14P-080-1261859-00

PATIENT
  Age: 64 Year
  Sex: Male

DRUGS (3)
  1. BIPERIDEN [Suspect]
     Active Substance: BIPERIDEN
     Indication: BIPOLAR I DISORDER
  2. OLANZAPINE. [Suspect]
     Active Substance: OLANZAPINE
     Indication: BIPOLAR I DISORDER
  3. SODIUM VALPROATE [Suspect]
     Active Substance: VALPROATE SODIUM
     Indication: BIPOLAR I DISORDER

REACTIONS (1)
  - Deep vein thrombosis [Recovered/Resolved]
